FAERS Safety Report 12384472 (Version 1)
Quarter: 2016Q2

REPORT INFORMATION
  Report Type: Spontaneous
  Country: US (occurrence: None)
  Receive Date: 20160518
  Receipt Date: 20160518
  Transmission Date: 20160815
  Serious: Yes (Other)
  Sender: FDA-Public Use
  Company Number: None

PATIENT
  Age: 31 Year
  Sex: Female
  Weight: 47.17 kg

DRUGS (1)
  1. HUMIRA [Suspect]
     Active Substance: ADALIMUMAB
     Indication: CROHN^S DISEASE
     Dosage: GIVEN INTO/UNDER THE SKIN

REACTIONS (7)
  - Myalgia [None]
  - Abdominal pain [None]
  - Fatigue [None]
  - Migraine [None]
  - Arthralgia [None]
  - Nausea [None]
  - Vomiting [None]
